FAERS Safety Report 6311330-0 (Version None)
Quarter: 2009Q3

REPORT INFORMATION
  Report Type: 
  Country: None (occurrence: None)
  Receive Date: 20090817
  Receipt Date: 20090804
  Transmission Date: 20100115
  Serious: Yes (Hospitalization)
  Sender: FDA-Public Use
  Company Number: PHHY2009FR33014

PATIENT
  Sex: Female

DRUGS (11)
  1. COTAREG [Suspect]
     Indication: HYPERTENSION
     Dosage: 160/12.5 MG DAILY
     Dates: end: 20090707
  2. NICARDIPINE HCL [Concomitant]
     Dosage: 50 MG, UNK
     Route: 048
  3. MODOPAR [Concomitant]
  4. IMOVANE [Concomitant]
  5. SINGULAIR [Concomitant]
  6. RAVOTRIL [Concomitant]
  7. BRICANYL [Concomitant]
  8. ATROVENT [Concomitant]
  9. PLAVIX [Concomitant]
  10. EFFEXOR [Concomitant]
  11. NITRODERM [Concomitant]

REACTIONS (5)
  - BLOOD CHLORIDE DECREASED [None]
  - BLOOD OSMOLARITY DECREASED [None]
  - FALL [None]
  - HYPONATRAEMIA [None]
  - TRAUMATIC BRAIN INJURY [None]
